FAERS Safety Report 10203770 (Version 1)
Quarter: 2014Q2

REPORT INFORMATION
  Report Type: Spontaneous
  Country: US (occurrence: None)
  Receive Date: 20140523
  Receipt Date: 20140523
  Transmission Date: 20141212
  Serious: Yes (Other)
  Sender: FDA-Public Use
  Company Number: VAL_03125_2014

PATIENT
  Age: 51 Year
  Sex: Male

DRUGS (6)
  1. METOPROLOL [Suspect]
     Indication: HYPERTENSION
     Dosage: (DF)
  2. HYDROCHLOROTHIAZIDE [Suspect]
     Indication: PRODUCT USED FOR UNKNOWN INDICATION
     Dosage: (DF)
  3. AMLODIPINE [Suspect]
     Indication: HYPERTENSION
     Dosage: (5 MG, DF)
  4. HYDRALAZINE [Suspect]
     Indication: HYPERTENSION
     Dosage: (DF)
  5. SPIRONOLACTONE [Suspect]
     Indication: HYPERTENSION
     Dosage: (DF)
  6. CLONIDINE [Suspect]
     Indication: HYPERTENSION
     Dosage: (DF)

REACTIONS (12)
  - Hyponatraemia [None]
  - Hypokalaemia [None]
  - Asthenia [None]
  - Headache [None]
  - Dyspnoea [None]
  - Polyuria [None]
  - Polydipsia [None]
  - Hypertension [None]
  - Hypotension [None]
  - Renal artery occlusion [None]
  - Renin decreased [None]
  - Proteinuria [None]
